FAERS Safety Report 6135879-9 (Version None)
Quarter: 2009Q1

REPORT INFORMATION
  Report Type: 
  Country: None (occurrence: None)
  Receive Date: 20090327
  Receipt Date: 20090318
  Transmission Date: 20090719
  Serious: Yes (Hospitalization, Disabling)
  Sender: FDA-Public Use
  Company Number: US-MERCK-0810USA04872

PATIENT
  Age: 60 Year
  Sex: Male

DRUGS (3)
  1. FOSAMAX [Suspect]
     Indication: RHEUMATOID ARTHRITIS
     Route: 048
     Dates: start: 19991227
  2. FOSAMAX [Suspect]
     Route: 048
     Dates: end: 20070705
  3. PREDNISONE [Concomitant]
     Route: 065

REACTIONS (25)
  - ALVEOLAR OSTEITIS [None]
  - BENIGN PROSTATIC HYPERPLASIA [None]
  - BRONCHIAL HYPERREACTIVITY [None]
  - BRONCHITIS [None]
  - CHRONIC OBSTRUCTIVE PULMONARY DISEASE [None]
  - CYST [None]
  - DENTAL PLAQUE [None]
  - GINGIVAL INFECTION [None]
  - HYPERTENSION [None]
  - IMPAIRED HEALING [None]
  - JAW DISORDER [None]
  - LIGAMENT RUPTURE [None]
  - NEUROPATHY PERIPHERAL [None]
  - OSTEOARTHRITIS [None]
  - OSTEONECROSIS [None]
  - PYREXIA [None]
  - SCIATICA [None]
  - SENSITIVITY OF TEETH [None]
  - SQUAMOUS CELL CARCINOMA OF SKIN [None]
  - TONGUE ULCERATION [None]
  - TOOTH ABSCESS [None]
  - TOOTH DISORDER [None]
  - TOOTH FRACTURE [None]
  - TOOTH LOSS [None]
  - TRIGEMINAL NERVE DISORDER [None]
